FAERS Safety Report 20132520 (Version 2)
Quarter: 2022Q1

REPORT INFORMATION
  Report Type: Spontaneous
  Country: US (occurrence: US)
  Receive Date: 20211130
  Receipt Date: 20220121
  Transmission Date: 20220424
  Serious: Yes (Hospitalization)
  Sender: FDA-Public Use
  Company Number: US-LUNDBECK-DKLU3041601

PATIENT
  Age: 57 Year
  Sex: Male

DRUGS (6)
  1. NORTHERA [Suspect]
     Active Substance: DROXIDOPA
     Indication: Orthostatic hypotension
     Dosage: OVERDOSE: 2100MG DAILY
     Route: 048
     Dates: start: 201806
  2. NORTHERA [Suspect]
     Active Substance: DROXIDOPA
     Dosage: OVERDOSE: 2100MG DAILY
     Route: 048
     Dates: start: 201806
  3. NORTHERA [Suspect]
     Active Substance: DROXIDOPA
     Dosage: OVERDOSE: 2100MG DAILY
     Route: 048
     Dates: start: 201806
  4. CLONIDINE [Concomitant]
     Active Substance: CLONIDINE
     Indication: Hypertension
     Route: 048
  5. FLUDROCORTISONE [Concomitant]
     Active Substance: FLUDROCORTISONE
     Indication: Product used for unknown indication
     Route: 065
  6. MIDODRINE [Concomitant]
     Active Substance: MIDODRINE
     Indication: Product used for unknown indication
     Route: 065

REACTIONS (4)
  - Blood pressure increased [Recovered/Resolved]
  - Syncope [Recovered/Resolved]
  - Hypotension [Recovered/Resolved]
  - Prescribed overdose [Unknown]
